FAERS Safety Report 17942844 (Version 5)
Quarter: 2020Q3

REPORT INFORMATION
  Report Type: Spontaneous
  Country: PL (occurrence: PL)
  Receive Date: 20200625
  Receipt Date: 20200731
  Transmission Date: 20201103
  Serious: Yes (Hospitalization, Disabling, Other)
  Sender: FDA-Public Use
  Company Number: PL-MYLANLABS-2020M1057993

PATIENT
  Age: 73 Year
  Sex: Female

DRUGS (46)
  1. DOXORUBICIN [Suspect]
     Active Substance: DOXORUBICIN
     Dosage: UNK
     Route: 042
     Dates: start: 20151124
  2. PACLITAXEL. [Suspect]
     Active Substance: PACLITAXEL
     Indication: METASTASES TO BONE
     Dosage: DOXORUBICIN/CYCLOPHOSPHAMIDE/PACLITAXEL REGIMEN
     Dates: start: 2015
  3. FLUOROURACIL. [Suspect]
     Active Substance: FLUOROURACIL
     Dosage: UNK
     Route: 042
     Dates: start: 20151026
  4. FLUOROURACIL. [Suspect]
     Active Substance: FLUOROURACIL
     Dosage: UNK
     Route: 065
     Dates: start: 201512
  5. ENDOXAN                            /00021102/ [Suspect]
     Active Substance: CYCLOPHOSPHAMIDE
     Indication: BREAST CANCER
     Dosage: DOXORUBICIN/CYCLOPHOSPHAMIDE/PACLITAXEL REGIMEN
     Route: 065
     Dates: start: 2015
  6. IRON [Concomitant]
     Active Substance: IRON
     Indication: SUPPLEMENTATION THERAPY
     Dosage: UNK
     Route: 065
     Dates: start: 2018
  7. ZOLEDRONIC ACID [Suspect]
     Active Substance: ZOLEDRONIC ACID
     Indication: BONE DISORDER
     Dosage: 4 MILLIGRAM, 28D CYCLE, 4/5 MILLIGRAM PER MILLILITRE
     Route: 042
     Dates: start: 2015
  8. ENDOXAN                            /00021102/ [Suspect]
     Active Substance: CYCLOPHOSPHAMIDE
     Dosage: DOXORUBICIN/CYCLOPHOSPHAMIDE (4 TIMES) + PACLITAXEL REGIMEN (12 TIMES)
     Route: 065
     Dates: start: 201508
  9. ZOLEDRONIC ACID [Concomitant]
     Active Substance: ZOLEDRONIC ACID
     Indication: PROPHYLAXIS
     Dosage: 4 MILLIGRAM, 28D CYCLE
     Route: 042
     Dates: start: 201509, end: 201904
  10. DOXORUBICIN [Suspect]
     Active Substance: DOXORUBICIN
     Dosage: UNK
     Route: 042
     Dates: start: 20150914
  11. PACLITAXEL. [Suspect]
     Active Substance: PACLITAXEL
     Dosage: 4 CYCLES: DOXORUBICIN + CYCLOPHOSPHAMIDE
     Dates: start: 201508, end: 201512
  12. MIDODRINE [Concomitant]
     Active Substance: MIDODRINE
     Indication: HYPOTONIA
     Dosage: UNK
     Route: 065
  13. TAMOXIFEN [Concomitant]
     Active Substance: TAMOXIFEN
     Indication: CANCER HORMONAL THERAPY
     Dosage: UNK
     Route: 065
     Dates: start: 201512
  14. TAMOXIFEN [Concomitant]
     Active Substance: TAMOXIFEN
     Indication: BREAST CANCER
  15. SODIUM TETRABORATE [Concomitant]
     Indication: ORAL MUCOSA EROSION
     Dosage: TOPICAL TREATMENT
     Route: 061
  16. PACLITAXEL. [Suspect]
     Active Substance: PACLITAXEL
     Dosage: UNK, CYCLE
     Route: 042
     Dates: start: 20150914
  17. CYCLOPHOSPHAMIDE. [Suspect]
     Active Substance: CYCLOPHOSPHAMIDE
     Indication: INVASIVE BREAST CARCINOMA
     Dosage: 4 CYCLE
     Route: 065
     Dates: start: 201508, end: 201512
  18. FLUOROURACIL. [Suspect]
     Active Substance: FLUOROURACIL
     Indication: BREAST CANCER FEMALE
     Dosage: UNK
     Route: 042
     Dates: start: 20150914
  19. MIDODRINE [Concomitant]
     Active Substance: MIDODRINE
     Indication: ORTHOSTATIC HYPOTENSION
     Dosage: 2.5 MILLIGRAM, QD
     Dates: start: 201801
  20. PARACETAMOL W/TRAMADOL [Concomitant]
     Active Substance: ACETAMINOPHEN\TRAMADOL
     Indication: SPINAL PAIN
     Dosage: UNK
  21. ZOLEDRONIC ACID [Concomitant]
     Active Substance: ZOLEDRONIC ACID
     Indication: METASTASES TO BONE
     Dosage: 4 MILLIGRAM, 28D CYCLE
     Route: 042
     Dates: start: 2015, end: 201904
  22. ZOLEDRONIC ACID [Suspect]
     Active Substance: ZOLEDRONIC ACID
     Indication: SPINAL PAIN
     Dosage: 4 MILLIGRAM, 28 DAY CYCLE
     Route: 042
     Dates: start: 201508
  23. ZOLEDRONIC ACID [Suspect]
     Active Substance: ZOLEDRONIC ACID
     Indication: METASTASES TO BONE
  24. DOXORUBICIN [Suspect]
     Active Substance: DOXORUBICIN
     Indication: METASTASES TO BONE
     Dosage: FLUOROURACIL/DOXORUBICIN/CYCLOPHOSPHAMIDE SCHEME
     Route: 065
     Dates: start: 2015, end: 201512
  25. PACLITAXEL. [Suspect]
     Active Substance: PACLITAXEL
     Dosage: DOXORUBICIN/CYCLOPHOSPHAMIDE (4 TIMES) + PACLITAXEL REGIMEN (12 TIMES)
     Route: 065
     Dates: start: 201508
  26. CYCLOPHOSPHAMIDE. [Suspect]
     Active Substance: CYCLOPHOSPHAMIDE
     Indication: BREAST CANCER
     Dosage: UNK UNK, CYCLE
     Route: 042
     Dates: start: 20150820
  27. FLUOROURACIL. [Suspect]
     Active Substance: FLUOROURACIL
     Dosage: UNK
     Route: 042
     Dates: start: 20151124
  28. CALCIUM CARBONATE. [Concomitant]
     Active Substance: CALCIUM CARBONATE
     Indication: SUPPLEMENTATION THERAPY
     Dosage: UNK
     Route: 065
     Dates: start: 2018
  29. PARACETAMOL W/TRAMADOL [Concomitant]
     Active Substance: ACETAMINOPHEN\TRAMADOL
     Indication: CONDITION AGGRAVATED
     Dosage: UNK
  30. ACETAMINOPHEN. [Concomitant]
     Active Substance: ACETAMINOPHEN
     Indication: SPINAL PAIN
     Dosage: UNK
  31. TRAMADOL. [Concomitant]
     Active Substance: TRAMADOL
     Indication: SPINAL PAIN
     Dosage: UNK
  32. DOXORUBICIN [Suspect]
     Active Substance: DOXORUBICIN
     Dosage: UNK
     Route: 042
     Dates: start: 20151005
  33. FLUOROURACIL. [Suspect]
     Active Substance: FLUOROURACIL
     Dosage: UNK
     Route: 042
     Dates: start: 20151005
  34. ZOLEDRONIC ACID [Suspect]
     Active Substance: ZOLEDRONIC ACID
     Indication: METASTATIC BONE DISEASE PROPHYLAXIS
     Dosage: 4 MILLIGRAM, Q28D
     Route: 042
     Dates: start: 201509, end: 201904
  35. DOXORUBICIN [Suspect]
     Active Substance: DOXORUBICIN
     Dosage: UNK, CYCLE
     Route: 042
     Dates: start: 20150820
  36. PACLITAXEL. [Suspect]
     Active Substance: PACLITAXEL
     Indication: BREAST CANCER FEMALE
     Dosage: 12 CYCLE
  37. PACLITAXEL. [Suspect]
     Active Substance: PACLITAXEL
     Dosage: UNK, CYCLE
     Route: 042
     Dates: start: 20151026
  38. PACLITAXEL. [Suspect]
     Active Substance: PACLITAXEL
     Dosage: UNK UNK, CYCLE
     Route: 042
     Dates: start: 20151124
  39. ENDOXAN                            /00021102/ [Suspect]
     Active Substance: CYCLOPHOSPHAMIDE
     Indication: METASTASES TO BONE
     Dosage: DOXORUBICIN/CYCLOPHOSPHAMIDE/FLUOROURACIL REGIMEN
     Route: 065
     Dates: start: 2015, end: 201512
  40. PARACETAMOL W/TRAMADOL [Concomitant]
     Active Substance: ACETAMINOPHEN\TRAMADOL
     Indication: BACK PAIN
  41. DOXORUBICIN [Suspect]
     Active Substance: DOXORUBICIN
     Indication: BREAST CANCER FEMALE
     Dosage: DOXORUBICIN/CYCLOPHOSPHAMIDE (4 TIMES) + PACLITAXEL REGIMEN (12 TIMES)4 CYCLE
     Route: 065
     Dates: start: 201508, end: 201512
  42. DOXORUBICIN [Suspect]
     Active Substance: DOXORUBICIN
     Dosage: UNK
     Route: 042
     Dates: start: 20151026
  43. PACLITAXEL. [Suspect]
     Active Substance: PACLITAXEL
     Dosage: UNK, CYCLE
     Route: 042
     Dates: start: 20151005
  44. FLUOROURACIL. [Suspect]
     Active Substance: FLUOROURACIL
     Indication: METASTASES TO BONE
     Dosage: FLUOROURACIL/DOXORUBICIN/CYCLOPHOSPHAMIDE REGIMEN
     Route: 065
     Dates: start: 2015, end: 201512
  45. MEGESTROL ACETATE. [Concomitant]
     Active Substance: MEGESTROL ACETATE
     Indication: INFECTION
     Dosage: 800 MILLIGRAM, QD
  46. FOLIC ACID. [Concomitant]
     Active Substance: FOLIC ACID
     Indication: SUPPLEMENTATION THERAPY
     Dosage: UNK, FOLIC ACID SUPPLEMENT
     Dates: start: 2018

REACTIONS (8)
  - Neutropenia [Recovered/Resolved]
  - Anaemia [Recovered/Resolved]
  - Oral pain [Recovered/Resolved]
  - Osteonecrosis of jaw [Not Recovered/Not Resolved]
  - Hypotonia [Unknown]
  - Atrial fibrillation [Recovered/Resolved]
  - Weight decreased [Recovered/Resolved]
  - Oral mucosa erosion [Recovered/Resolved]

NARRATIVE: CASE EVENT DATE: 2015
